FAERS Safety Report 12234106 (Version 1)
Quarter: 2016Q2

REPORT INFORMATION
  Report Type: Spontaneous
  Country: US (occurrence: None)
  Receive Date: 20160401
  Receipt Date: 20160401
  Transmission Date: 20160815
  Serious: Yes (Hospitalization, Other)
  Sender: FDA-Public Use
  Company Number: None

PATIENT
  Age: 57 Year
  Sex: Female
  Weight: 92.08 kg

DRUGS (4)
  1. COREG-GENERIC 6.25G [Suspect]
     Active Substance: CARVEDILOL
     Indication: CARDIAC FAILURE CONGESTIVE
     Route: 048
     Dates: start: 2011
  2. COREG-GENERIC 6.25G [Suspect]
     Active Substance: CARVEDILOL
     Indication: CARDIOMYOPATHY
     Route: 048
     Dates: start: 2011
  3. LISINOPRIL. [Concomitant]
     Active Substance: LISINOPRIL
  4. FUROSEMIDE. [Concomitant]
     Active Substance: FUROSEMIDE

REACTIONS (3)
  - Product substitution issue [None]
  - Cardiomyopathy [None]
  - Cardiac failure congestive [None]

NARRATIVE: CASE EVENT DATE: 2011
